FAERS Safety Report 15061799 (Version 5)
Quarter: 2018Q3

REPORT INFORMATION
  Report Type: Spontaneous
  Country: US (occurrence: US)
  Receive Date: 20180625
  Receipt Date: 20180804
  Transmission Date: 20181010
  Serious: No
  Sender: FDA-Public Use
  Company Number: PHEH2018US025541

PATIENT
  Sex: Female

DRUGS (2)
  1. LENVIMA [Suspect]
     Active Substance: LENVATINIB
     Indication: RENAL NEOPLASM
     Dosage: 18 MG, QD
     Route: 048
     Dates: start: 20180605, end: 20180625
  2. AFINITOR [Suspect]
     Active Substance: EVEROLIMUS
     Indication: RENAL NEOPLASM
     Dosage: 5 MG, QD
     Route: 048
     Dates: start: 20180605, end: 20180625

REACTIONS (14)
  - Hordeolum [Unknown]
  - Cervicitis [Unknown]
  - Peripheral swelling [Unknown]
  - Gastrointestinal infection [Unknown]
  - Chest pain [Recovering/Resolving]
  - Abdominal hernia [Unknown]
  - Eye swelling [Unknown]
  - Rash pruritic [Recovered/Resolved]
  - Gastritis [Unknown]
  - Cervix inflammation [Unknown]
  - Platelet count decreased [Recovered/Resolved]
  - Blood sodium decreased [Unknown]
  - Oropharyngeal pain [Unknown]
  - Cough [Recovering/Resolving]
